FAERS Safety Report 5048841-4 (Version None)
Quarter: 2006Q3

REPORT INFORMATION
  Report Type: 
  Country: None (occurrence: None)
  Receive Date: 20060712
  Receipt Date: 20060705
  Transmission Date: 20061208
  Serious: Yes (Hospitalization)
  Sender: FDA-Public Use
  Company Number: FI-AVENTIS-200617056GDDC

PATIENT
  Age: 65 Year
  Sex: Female

DRUGS (7)
  1. DOCETAXEL [Suspect]
     Indication: BREAST CANCER
     Route: 042
     Dates: start: 20060412, end: 20060531
  2. FENTANYL TRANSDERMAL SYSTEM [Concomitant]
     Dates: start: 20050809
  3. OXYCODONE HYDROCHLORIDE [Concomitant]
  4. DIAZEPAM [Concomitant]
  5. PANTOPRAZOLE [Concomitant]
  6. LACTULOSE [Concomitant]
  7. CLODRONATE DISODIUM [Concomitant]

REACTIONS (3)
  - CYSTITIS [None]
  - DISORIENTATION [None]
  - OVERDOSE [None]
